FAERS Safety Report 7515377-8 (Version None)
Quarter: 2011Q2

REPORT INFORMATION
  Report Type: 
  Country: None (occurrence: None)
  Receive Date: 20110601
  Receipt Date: 20100621
  Transmission Date: 20111010
  Serious: Yes (Other)
  Sender: FDA-Public Use
  Company Number: US-PFIZER INC-2010077638

PATIENT
  Sex: Male
  Weight: 68 kg

DRUGS (3)
  1. CHANTIX [Suspect]
     Dosage: UNK MG, 2X/DAY
     Route: 048
     Dates: start: 20100101, end: 20100620
  2. XANAX [Concomitant]
     Indication: PANIC ATTACK
     Dosage: 1 MG, 2X/DAY
     Route: 048
  3. CHANTIX [Suspect]
     Indication: SMOKING CESSATION THERAPY
     Dosage: 0.5 MG, 1X/DAY
     Route: 048
     Dates: start: 20100101, end: 20100101

REACTIONS (8)
  - ABNORMAL DREAMS [None]
  - NAUSEA [None]
  - INSOMNIA [None]
  - FLATULENCE [None]
  - CHEST DISCOMFORT [None]
  - OROPHARYNGEAL BLISTERING [None]
  - DECREASED APPETITE [None]
  - DIARRHOEA [None]
